FAERS Safety Report 18695744 (Version 1)
Quarter: 2021Q1

REPORT INFORMATION
  Report Type: Spontaneous
  Country: US (occurrence: US)
  Receive Date: 20210104
  Receipt Date: 20210104
  Transmission Date: 20210419
  Serious: Yes (Other)
  Sender: FDA-Public Use
  Company Number: None

PATIENT
  Age: 76 Year
  Sex: Female
  Weight: 50.8 kg

DRUGS (3)
  1. REMDESIVIR. [Concomitant]
     Active Substance: REMDESIVIR
     Dates: start: 20201230, end: 20210103
  2. REMDESIVIR. [Suspect]
     Active Substance: REMDESIVIR
  3. AMIODARONE [Concomitant]
     Active Substance: AMIODARONE
     Dates: start: 20210103, end: 20210104

REACTIONS (5)
  - Aspartate aminotransferase increased [None]
  - Hepatic enzyme increased [None]
  - Atrial fibrillation [None]
  - Therapy change [None]
  - Alanine aminotransferase increased [None]

NARRATIVE: CASE EVENT DATE: 20210104
